FAERS Safety Report 23868781 (Version 1)
Quarter: 2024Q2

REPORT INFORMATION
  Report Type: Spontaneous
  Country: US (occurrence: None)
  Receive Date: 20240516
  Receipt Date: 20240516
  Transmission Date: 20240716
  Serious: Yes (Life-Threatening, Hospitalization, Disabling, Other)
  Sender: FDA-Public Use
  Company Number: None

PATIENT
  Age: 43 Year
  Sex: Female
  Weight: 55.35 kg

DRUGS (8)
  1. INJECTAFER [Suspect]
     Active Substance: FERRIC CARBOXYMALTOSE
     Indication: Iron deficiency anaemia
     Route: 042
     Dates: start: 20240329, end: 20240329
  2. Midrodine [Concomitant]
  3. Phospha [Concomitant]
  4. ASIAN GINSENG [Concomitant]
     Active Substance: ASIAN GINSENG
  5. VITAMIN D3 [Concomitant]
     Active Substance: CHOLECALCIFEROL
  6. oral iron [Concomitant]
  7. VITAMIN C [Concomitant]
     Active Substance: ASCORBIC ACID
  8. DHA fish oil [Concomitant]

REACTIONS (20)
  - Hypophosphataemia [None]
  - Movement disorder [None]
  - Fatigue [None]
  - Lethargy [None]
  - Arthralgia [None]
  - Bone pain [None]
  - Myalgia [None]
  - Brain fog [None]
  - Major depression [None]
  - Anxiety [None]
  - Anxiety [None]
  - Listless [None]
  - Orthostatic hypotension [None]
  - Decreased appetite [None]
  - Loss of personal independence in daily activities [None]
  - Bedridden [None]
  - Impaired work ability [None]
  - General physical condition abnormal [None]
  - Feeling abnormal [None]
  - Renal tubular dysfunction [None]

NARRATIVE: CASE EVENT DATE: 20240330
